FAERS Safety Report 9687875 (Version 1)
Quarter: 2013Q4

REPORT INFORMATION
  Report Type: Spontaneous
  Country: FR (occurrence: FR)
  Receive Date: 20131114
  Receipt Date: 20131114
  Transmission Date: 20140711
  Serious: Yes (Other)
  Sender: FDA-Public Use
  Company Number: FR-JNJFOC-20131102876

PATIENT
  Age: 50 Year
  Sex: Female

DRUGS (1)
  1. XEPLION [Suspect]
     Indication: SCHIZOPHRENIA
     Route: 030
     Dates: start: 20130227, end: 20130612

REACTIONS (5)
  - Anxiety [Recovered/Resolved]
  - Personality disorder [Recovered/Resolved]
  - Apathy [Recovered/Resolved]
  - Listless [Recovered/Resolved]
  - Sleep disorder [Recovered/Resolved]
